FAERS Safety Report 20336784 (Version 1)
Quarter: 2022Q1

REPORT INFORMATION
  Report Type: Spontaneous
  Country: FR (occurrence: FR)
  Receive Date: 20220114
  Receipt Date: 20220114
  Transmission Date: 20220424
  Serious: Yes (Life-Threatening)
  Sender: FDA-Public Use
  Company Number: FR-FERRINGPH-2022FE00067

PATIENT
  Sex: Male

DRUGS (1)
  1. FIRMAGON [Suspect]
     Active Substance: DEGARELIX ACETATE
     Indication: Prostate cancer
     Dosage: 240 MG, ONCE/SINGLE
     Route: 065
     Dates: start: 20220107

REACTIONS (4)
  - Dyspnoea [Unknown]
  - Chest pain [Unknown]
  - Injection site pain [Unknown]
  - Pelvic pain [Unknown]

NARRATIVE: CASE EVENT DATE: 20220107
